FAERS Safety Report 10183899 (Version 2)
Quarter: 2014Q2

REPORT INFORMATION
  Report Type: Spontaneous
  Country: US (occurrence: US)
  Receive Date: 20140520
  Receipt Date: 20140527
  Transmission Date: 20141212
  Serious: Yes (Hospitalization)
  Sender: FDA-Public Use
  Company Number: US-BAXTER-2014BAX022008

PATIENT
  Age: 71 Year
  Sex: Male
  Weight: 85.35 kg

DRUGS (1)
  1. 0.9% SODIUM CHLORIDE INJECTION [Suspect]
     Indication: DIALYSIS
     Dosage: 1-2BAGS
     Route: 042
     Dates: start: 20120425

REACTIONS (2)
  - Cardiac failure congestive [Unknown]
  - Hypotension [Recovering/Resolving]
